FAERS Safety Report 9136555 (Version 1)
Quarter: 2013Q1

REPORT INFORMATION
  Report Type: Spontaneous
  Country: US (occurrence: US)
  Receive Date: 20130304
  Receipt Date: 20130304
  Transmission Date: 20140127
  Serious: No
  Sender: FDA-Public Use
  Company Number: US-ABBOTT-12P-163-0947537-00

PATIENT
  Sex: Male

DRUGS (1)
  1. ANDROGEL 1% [Suspect]
     Indication: PRODUCT USED FOR UNKNOWN INDICATION

REACTIONS (5)
  - Feeling abnormal [Recovering/Resolving]
  - Arthralgia [Recovering/Resolving]
  - Bone pain [Recovering/Resolving]
  - Asthenia [Recovering/Resolving]
  - Depression [Recovering/Resolving]
